FAERS Safety Report 23966367 (Version 1)
Quarter: 2024Q2

REPORT INFORMATION
  Report Type: Spontaneous
  Country: CA (occurrence: CA)
  Receive Date: 20240612
  Receipt Date: 20240612
  Transmission Date: 20240716
  Serious: Yes (Other)
  Sender: FDA-Public Use
  Company Number: CA-UCBSA-2024029149

PATIENT

DRUGS (3)
  1. LEVETIRACETAM [Suspect]
     Active Substance: LEVETIRACETAM
     Indication: Autonomic seizure
     Dosage: UNK
  2. LEVETIRACETAM [Suspect]
     Active Substance: LEVETIRACETAM
     Indication: Off label use
  3. CLOBAZAM [Suspect]
     Active Substance: CLOBAZAM
     Indication: Autonomic seizure
     Dosage: UNK

REACTIONS (3)
  - Sedation [Unknown]
  - Drug ineffective [Unknown]
  - Off label use [Unknown]
